FAERS Safety Report 8887616 (Version 1)
Quarter: 2012Q4

REPORT INFORMATION
  Report Type: Spontaneous
  Country: US (occurrence: None)
  Receive Date: 20121101
  Receipt Date: 20121101
  Transmission Date: 20130627
  Serious: Yes (Other)
  Sender: FDA-Public Use
  Company Number: None

PATIENT
  Age: 57 Year
  Sex: Male
  Weight: 91.17 kg

DRUGS (1)
  1. RAPAFLO [Suspect]

REACTIONS (2)
  - Retrograde ejaculation [None]
  - Nasal congestion [None]
